FAERS Safety Report 6340237-8 (Version None)
Quarter: 2009Q3

REPORT INFORMATION
  Report Type: 
  Country: None (occurrence: None)
  Receive Date: 20090902
  Receipt Date: 20090824
  Transmission Date: 20100115
  Serious: Yes (Hospitalization, Other)
  Sender: FDA-Public Use
  Company Number: JPI-P-008367

PATIENT
  Age: 55 Year
  Sex: Female

DRUGS (5)
  1. XYREM                    (500 MG/ML)  (SODIUM OXYBATE) [Suspect]
     Indication: INSOMNIA
     Dosage: 7.5 GM (3.75 GM, 2 IN  D), ORAL
     Route: 048
     Dates: end: 20090809
  2. XYREM                    (500 MG/ML)  (SODIUM OXYBATE) [Suspect]
     Indication: INSOMNIA
     Dosage: 7.5 GM (3.75 GM, 2 IN  D), ORAL
     Route: 048
     Dates: start: 20050107
  3. MIRTAZAPINE [Concomitant]
  4. LORAZEPAM [Concomitant]
  5. LISINOPRIL [Concomitant]

REACTIONS (4)
  - CONVERSION DISORDER [None]
  - FALL [None]
  - FATIGUE [None]
  - JOINT DISLOCATION [None]
